FAERS Safety Report 4343684-9 (Version None)
Quarter: 2004Q2

REPORT INFORMATION
  Report Type: 
  Country: None (occurrence: None)
  Receive Date: 20040422
  Receipt Date: 20040224
  Transmission Date: 20050107
  Serious: Yes (Life-Threatening)
  Sender: FDA-Public Use
  Company Number: JP-BRISTOL-MYERS SQUIBB COMPANY-12516035

PATIENT
  Age: 35 Year
  Sex: Male

DRUGS (13)
  1. TAXOL [Suspect]
     Indication: LUNG NEOPLASM MALIGNANT
     Route: 042
     Dates: start: 20040127, end: 20040127
  2. PARAPLATIN [Suspect]
     Indication: LUNG NEOPLASM MALIGNANT
     Route: 042
     Dates: start: 20040127, end: 20040127
  3. DICLOFENAC SODIUM [Suspect]
     Route: 054
     Dates: start: 20040114, end: 20040218
  4. LOXOPROFEN SODIUM [Suspect]
     Route: 048
     Dates: start: 20040114, end: 20040130
  5. RADIATION THERAPY [Concomitant]
     Dosage: 38 GY
     Dates: start: 20040122, end: 20040218
  6. DEXAMETHASONE SODIUM PHOSPHATE [Concomitant]
     Route: 042
     Dates: start: 20040126, end: 20040127
  7. DIPHENHYDRAMINE HCL [Concomitant]
     Route: 048
     Dates: start: 20040127, end: 20040127
  8. MS CONTIN [Concomitant]
     Dosage: 40-80MG
     Route: 048
     Dates: start: 20040120, end: 20040210
  9. ONDANSETRON HCL [Concomitant]
     Route: 042
     Dates: start: 20040127, end: 20040127
  10. RANITIDINE HCL [Concomitant]
     Route: 042
     Dates: start: 20040127, end: 20040127
  11. REBAMIPIDE [Concomitant]
     Route: 048
     Dates: start: 20040114, end: 20040130
  12. CODEINE PHOSPHATE [Concomitant]
     Route: 048
     Dates: start: 20040114, end: 20040206
  13. MAGNESIUM OXIDE [Concomitant]
     Route: 048
     Dates: start: 20040114, end: 20040218

REACTIONS (2)
  - ANOREXIA [None]
  - RENAL FAILURE [None]
